FAERS Safety Report 8557802-X (Version None)
Quarter: 2012Q3

REPORT INFORMATION
  Report Type: 
  Country: None (occurrence: None)
  Receive Date: 20120801
  Receipt Date: 20120723
  Transmission Date: 20120928
  Serious: Yes (Other)
  Sender: FDA-Public Use
  Company Number: US-CELGENEUS-163-21880-12072526

PATIENT
  Sex: Male
  Weight: 100.2 kg

DRUGS (2)
  1. VELCADE [Concomitant]
     Route: 065
  2. REVLIMID [Suspect]
     Indication: MULTIPLE MYELOMA
     Dosage: 25 MILLIGRAM
     Route: 048
     Dates: start: 20100219

REACTIONS (2)
  - FULL BLOOD COUNT INCREASED [None]
  - FATIGUE [None]
